FAERS Safety Report 25322872 (Version 1)
Quarter: 2025Q2

REPORT INFORMATION
  Report Type: Spontaneous
  Country: US (occurrence: US)
  Receive Date: 20250516
  Receipt Date: 20250516
  Transmission Date: 20250716
  Serious: Yes (Hospitalization)
  Sender: ROCHE
  Company Number: US-ROCHE-10000280843

PATIENT
  Age: 77 Year
  Sex: Male

DRUGS (1)
  1. POLIVY [Suspect]
     Active Substance: POLATUZUMAB VEDOTIN-PIIQ
     Indication: Diffuse large B-cell lymphoma
     Route: 042

REACTIONS (3)
  - Sepsis [Not Recovered/Not Resolved]
  - Neutropenia [Unknown]
  - Stomatitis [Unknown]

NARRATIVE: CASE EVENT DATE: 20250101
